FAERS Safety Report 10043374 (Version 1)
Quarter: 2014Q1

REPORT INFORMATION
  Report Type: Spontaneous
  Country: US (occurrence: US)
  Receive Date: 20140328
  Receipt Date: 20140328
  Transmission Date: 20141002
  Serious: Yes (Hospitalization, Other)
  Sender: FDA-Public Use
  Company Number: US-BAYER-2014-045672

PATIENT
  Age: 38 Year
  Sex: Female
  Weight: 97.96 kg

DRUGS (17)
  1. YAZ [Suspect]
  2. ALPRAZOLAM [Concomitant]
     Dosage: 0.5 MG, UNK
     Route: 048
     Dates: start: 20090806, end: 20091013
  3. CYCLOBENZAPRINE [Concomitant]
     Dosage: 10 MG, UNK
     Route: 048
     Dates: start: 20090901
  4. IBUPROFEN [Concomitant]
     Dosage: 800 MG, UNK
     Route: 048
     Dates: start: 20090901
  5. PROPOXYPHENE HCL AND ACETAMINOPHEN [Concomitant]
     Dosage: 100 -650 MG
     Route: 048
     Dates: start: 20090901
  6. DIFLUCAN [Concomitant]
     Dosage: 150 MG, UNK
     Route: 048
  7. TRAMADOL [Concomitant]
     Dosage: 50 MG, UNK
     Route: 048
  8. BIAXIN [Concomitant]
     Indication: SINUSITIS
     Route: 048
  9. MUCINEX [Concomitant]
     Dosage: 600 MG, UNK
     Route: 048
  10. PYRIDIUM [Concomitant]
     Dosage: 100 MG, THREE TIMES A DAY FOR 2 DAYS
     Route: 048
  11. WELLBUTRIN [Concomitant]
     Dosage: 150 MG, UNK
     Route: 048
  12. FLEXERIL [Concomitant]
  13. DARVOCET [Concomitant]
  14. XANAX [Concomitant]
  15. PERCOCET [Concomitant]
  16. VICODIN [Concomitant]
  17. AUGMENTIN [Concomitant]
     Indication: SINUSITIS

REACTIONS (2)
  - Pulmonary embolism [Recovered/Resolved]
  - Deep vein thrombosis [Recovered/Resolved]
